FAERS Safety Report 10347113 (Version 1)
Quarter: 2014Q3

REPORT INFORMATION
  Report Type: Spontaneous
  Country: US (occurrence: US)
  Receive Date: 20140729
  Receipt Date: 20140729
  Transmission Date: 20150326
  Serious: Yes (Hospitalization, Disabling, Other)
  Sender: FDA-Public Use
  Company Number: 2013SP008896

PATIENT
  Age: 43 Year
  Sex: Female

DRUGS (5)
  1. REMICADE [Concomitant]
     Active Substance: INFLIXIMAB
  2. HUMIRA [Concomitant]
     Active Substance: ADALIMUMAB
  3. METHOTREXATE [Suspect]
     Active Substance: METHOTREXATE
     Indication: PRODUCT USED FOR UNKNOWN INDICATION
  4. ENBREL [Suspect]
     Active Substance: ETANERCEPT
     Indication: PSORIATIC ARTHROPATHY
     Dates: start: 20050301
  5. SIMPONI [Suspect]
     Active Substance: GOLIMUMAB
     Indication: PRODUCT USED FOR UNKNOWN INDICATION

REACTIONS (15)
  - Infection [Unknown]
  - Influenza like illness [Not Recovered/Not Resolved]
  - Ear infection [Not Recovered/Not Resolved]
  - Urinary tract disorder [Unknown]
  - Oropharyngeal pain [Not Recovered/Not Resolved]
  - Pyrexia [Not Recovered/Not Resolved]
  - Kidney infection [Unknown]
  - Headache [Not Recovered/Not Resolved]
  - Ear pain [Not Recovered/Not Resolved]
  - Rhinorrhoea [Not Recovered/Not Resolved]
  - Feeling abnormal [Not Recovered/Not Resolved]
  - Multiple sclerosis [Not Recovered/Not Resolved]
  - Surgery [Recovered/Resolved]
  - Psoriatic arthropathy [Not Recovered/Not Resolved]
  - Uveitis [Recovered/Resolved]

NARRATIVE: CASE EVENT DATE: 201309
